FAERS Safety Report 15744566 (Version 1)
Quarter: 2018Q4

REPORT INFORMATION
  Report Type: Spontaneous
  Country: JP (occurrence: JP)
  Receive Date: 20181220
  Receipt Date: 20181220
  Transmission Date: 20190205
  Serious: Yes (Death, Life-Threatening, Hospitalization)
  Sender: FDA-Public Use
  Company Number: JP-B.I. PHARMACEUTICALS,INC./RIDGEFIELD-2015-BI-70374NB

PATIENT
  Age: 60 Year
  Sex: Male

DRUGS (10)
  1. CODEINE PHOSPHATE [Concomitant]
     Active Substance: CODEINE PHOSPHATE
     Indication: COUGH
     Route: 048
     Dates: start: 20151104, end: 20151130
  2. OMEPRAZOLE. [Concomitant]
     Active Substance: OMEPRAZOLE
     Indication: PROPHYLAXIS AGAINST GASTROINTESTINAL ULCER
     Route: 042
     Dates: start: 20151130, end: 20151211
  3. GILOTRIF [Suspect]
     Active Substance: AFATINIB
     Indication: LUNG NEOPLASM MALIGNANT
     Route: 048
     Dates: start: 20140806, end: 20141007
  4. GLYCYRON [Concomitant]
     Indication: HEPATIC FUNCTION ABNORMAL
     Route: 048
     Dates: start: 20150204
  5. MICARDIS [Concomitant]
     Active Substance: TELMISARTAN
     Indication: HYPERTENSION
     Route: 048
     Dates: start: 20150508
  6. AMLODIPINE [Concomitant]
     Active Substance: AMLODIPINE BESYLATE
     Indication: HYPERTENSION
     Route: 048
     Dates: start: 20150415
  7. GILOTRIF [Suspect]
     Active Substance: AFATINIB
     Route: 048
     Dates: start: 20141008, end: 20150120
  8. MAGMITT [Concomitant]
     Active Substance: MAGNESIUM OXIDE
     Indication: CONSTIPATION
     Route: 048
     Dates: start: 20151104, end: 20151130
  9. GILOTRIF [Suspect]
     Active Substance: AFATINIB
     Route: 048
     Dates: start: 20150121, end: 20151130
  10. ZOSYN [Concomitant]
     Active Substance: PIPERACILLIN SODIUM\TAZOBACTAM SODIUM
     Indication: PRODUCT USED FOR UNKNOWN INDICATION
     Route: 065
     Dates: start: 20151130, end: 20151212

REACTIONS (2)
  - Cutaneous symptom [Recovering/Resolving]
  - Interstitial lung disease [Fatal]

NARRATIVE: CASE EVENT DATE: 20150415
